FAERS Safety Report 21612827 (Version 1)
Quarter: 2022Q4

REPORT INFORMATION
  Report Type: Spontaneous
  Country: US (occurrence: None)
  Receive Date: 20221118
  Receipt Date: 20221118
  Transmission Date: 20230112
  Serious: Yes (Life-Threatening, Hospitalization, Other)
  Sender: FDA-Public Use
  Company Number: US-MLMSERVICE-20221108-3888699-1

PATIENT
  Age: 2 Month
  Sex: Male

DRUGS (2)
  1. METHOTREXATE [Suspect]
     Active Substance: METHOTREXATE
     Indication: Product used for unknown indication
     Dosage: 0.4MG/KG FOR THREE CONSECUTIVE DAYS, STARTING ON THE DAY PRIOR TO THE INFUSION, ON DOL 30. THIS PROT
     Route: 065
  2. ALGLUCOSIDASE ALFA [Concomitant]
     Active Substance: ALGLUCOSIDASE ALFA
     Indication: Glycogen storage disease type II
     Route: 065

REACTIONS (3)
  - Anaemia [Unknown]
  - Condition aggravated [Unknown]
  - Cardiomegaly [Unknown]
